FAERS Safety Report 8251267-3 (Version None)
Quarter: 2012Q2

REPORT INFORMATION
  Report Type: 
  Country: None (occurrence: None)
  Receive Date: 20120402
  Receipt Date: 20120321
  Transmission Date: 20120825
  Serious: Yes (Death)
  Sender: FDA-Public Use
  Company Number: US-SANOFI-AVENTIS-2012SA020238

PATIENT
  Sex: Male

DRUGS (1)
  1. AMBIEN [Suspect]
     Dates: start: 20100308, end: 20100309

REACTIONS (1)
  - DEATH [None]
